FAERS Safety Report 4645736-2 (Version None)
Quarter: 2005Q2

REPORT INFORMATION
  Report Type: 
  Country: None (occurrence: None)
  Receive Date: 20050425
  Receipt Date: 20050425
  Transmission Date: 20051028
  Serious: Yes (Disabling)
  Sender: FDA-Public Use
  Company Number: None

PATIENT
  Age: 83 Year
  Sex: Male

DRUGS (1)
  1. COUMADIN [Suspect]
     Dosage: ALTERNATING PO
     Route: 048

REACTIONS (4)
  - HAEMORRHAGIC STROKE [None]
  - HEADACHE [None]
  - HYPERTENSION [None]
  - INTERNATIONAL NORMALISED RATIO INCREASED [None]
